FAERS Safety Report 23603016 (Version 2)
Quarter: 2024Q2

REPORT INFORMATION
  Report Type: Report from Study
  Country: US (occurrence: US)
  Receive Date: 20240306
  Receipt Date: 20240416
  Transmission Date: 20240716
  Serious: Yes (Other)
  Sender: FDA-Public Use
  Company Number: US-ABBVIE-5624130

PATIENT
  Sex: Male

DRUGS (3)
  1. RINVOQ [Suspect]
     Active Substance: UPADACITINIB
     Indication: Rheumatoid arthritis
     Dosage: FORM STRENGTH: 15 MILLIGRAM?DOSE-15 MG
     Route: 048
     Dates: start: 202311, end: 20240209
  2. RINVOQ [Suspect]
     Active Substance: UPADACITINIB
     Indication: Rheumatoid arthritis
     Dosage: FORM STRENGTH: 15 MILLIGRAM?DOSE- 15 MG
     Route: 048
     Dates: start: 20240219
  3. ORENCIA [Concomitant]
     Active Substance: ABATACEPT
     Indication: Product used for unknown indication
     Dosage: ORENCIA CLICKJECT AUTOINJ

REACTIONS (3)
  - Surgery [Unknown]
  - Pain in extremity [Not Recovered/Not Resolved]
  - Eyelid infection [Recovering/Resolving]

NARRATIVE: CASE EVENT DATE: 20240101
